FAERS Safety Report 7399620-4 (Version None)
Quarter: 2011Q2

REPORT INFORMATION
  Report Type: 
  Country: None (occurrence: None)
  Receive Date: 20110407
  Receipt Date: 20110214
  Transmission Date: 20111010
  Serious: Yes (Hospitalization, Other)
  Sender: FDA-Public Use
  Company Number: US-BAYER-201038125NA

PATIENT
  Sex: Female
  Weight: 72.562 kg

DRUGS (14)
  1. OCELLA [Suspect]
     Indication: ACNE
     Dosage: UNK
     Dates: start: 20020101, end: 20100101
  2. MIRALAX [Concomitant]
     Dosage: UNK
     Dates: start: 20061005
  3. PROZAC [Concomitant]
     Indication: DEPRESSION
     Dosage: UNK
     Dates: start: 20040101, end: 20090101
  4. YASMIN [Suspect]
     Indication: CONTRACEPTION
  5. HEPARIN [Concomitant]
     Dosage: UNK
     Dates: start: 20070701
  6. YAZ [Suspect]
     Indication: ACNE
     Dosage: UNK
     Dates: start: 20020101, end: 20100101
  7. SYNTHROID [Concomitant]
     Dosage: UNK
     Dates: start: 20091201
  8. YASMIN [Suspect]
     Indication: ACNE
     Dosage: UNK
     Dates: start: 20020101, end: 20100101
  9. ADDERALL 10 [Concomitant]
     Indication: ATTENTION DEFICIT/HYPERACTIVITY DISORDER
     Dosage: UNK
     Dates: start: 20060101, end: 20100101
  10. OCELLA [Suspect]
     Indication: CONTRACEPTION
  11. ZELNORM [Concomitant]
     Indication: CONSTIPATION
     Dosage: UNK
     Dates: start: 20060101, end: 20070101
  12. NIRAVAM [Concomitant]
     Dosage: UNK
     Dates: start: 20070716
  13. YAZ [Suspect]
     Indication: CONTRACEPTION
  14. VICODIN [Concomitant]

REACTIONS (8)
  - PAIN [None]
  - INJURY [None]
  - ABDOMINAL TENDERNESS [None]
  - ABDOMINAL PAIN UPPER [None]
  - CONSTIPATION [None]
  - CHOLECYSTITIS CHRONIC [None]
  - CHOLELITHIASIS [None]
  - DIVERTICULUM [None]
